FAERS Safety Report 5297459-7 (Version None)
Quarter: 2007Q2

REPORT INFORMATION
  Report Type: 
  Country: None (occurrence: None)
  Receive Date: 20070416
  Receipt Date: 20061017
  Transmission Date: 20071010
  Serious: No
  Sender: FDA-Public Use
  Company Number: 2006GPS01404

PATIENT
  Age: 34 Year
  Sex: Female
  Weight: 62.7 kg

DRUGS (2)
  1. COMPAZINE [Suspect]
     Indication: NAUSEA
     Route: 065
  2. IV FLUIDS [Concomitant]

REACTIONS (4)
  - DYSPNOEA [None]
  - HYPERSENSITIVITY [None]
  - SWOLLEN TONGUE [None]
  - THROAT TIGHTNESS [None]
